FAERS Safety Report 6526922-3 (Version None)
Quarter: 2009Q4

REPORT INFORMATION
  Report Type: 
  Country: None (occurrence: None)
  Receive Date: 20091222
  Receipt Date: 20090908
  Transmission Date: 20100525
  Serious: Yes (Other)
  Sender: FDA-Public Use
  Company Number: US-GDP-09406619

PATIENT
  Age: 15 Year
  Sex: Male

DRUGS (3)
  1. DIFFERIN [Suspect]
     Indication: ACNE
     Dosage: 1 DF QD TOPICAL
     Route: 061
  2. BENZACLIN TOPICAL [Concomitant]
  3. COSMETICS [Concomitant]

REACTIONS (1)
  - SKIN REACTION [None]
